FAERS Safety Report 6993666-3 (Version None)
Quarter: 2010Q3

REPORT INFORMATION
  Report Type: 
  Country: None (occurrence: None)
  Receive Date: 20100917
  Receipt Date: 20070613
  Transmission Date: 20110219
  Serious: Yes (Other)
  Sender: FDA-Public Use
  Company Number: US-ASTRAZENECA-2006UW25034

PATIENT
  Age: 17475 Day
  Sex: Female
  Weight: 93 kg

DRUGS (15)
  1. SEROQUEL [Suspect]
     Indication: BIPOLAR DISORDER
     Dosage: 25-200 MG
     Route: 048
     Dates: start: 20000515
  2. SEROQUEL [Suspect]
     Indication: PARANOIA
     Dosage: 25-200 MG
     Route: 048
     Dates: start: 20000515
  3. CLOZARIL [Concomitant]
  4. NAVANE [Concomitant]
  5. RISPERDAL [Concomitant]
  6. ZYPREXA [Concomitant]
  7. KLONOPIN [Concomitant]
     Indication: ANXIETY
     Dosage: 0.5-2 MG
     Dates: start: 20020928
  8. CYMBALTA [Concomitant]
     Indication: DEPRESSION
     Dosage: 30-90 MG
     Dates: start: 20020928
  9. LAMICTAL [Concomitant]
     Indication: AFFECTIVE DISORDER
     Dates: start: 20020928
  10. PROZAC [Concomitant]
     Dosage: 20-90 MG
     Dates: start: 20000711
  11. GEODON [Concomitant]
     Dates: start: 20040227
  12. VISTARIL [Concomitant]
     Indication: ANXIETY
     Dates: start: 20000711
  13. EFFEXOR XR [Concomitant]
     Dates: start: 20001219
  14. BUSPAR [Concomitant]
     Dates: start: 20000515
  15. PAXIL [Concomitant]
     Indication: DEPRESSION
     Dates: start: 20030318

REACTIONS (3)
  - DIABETES MELLITUS [None]
  - DIABETES MELLITUS INADEQUATE CONTROL [None]
  - TYPE 2 DIABETES MELLITUS [None]
